FAERS Safety Report 5028533-8 (Version None)
Quarter: 2006Q2

REPORT INFORMATION
  Report Type: 
  Country: None (occurrence: None)
  Receive Date: 20060617
  Receipt Date: 20060606
  Transmission Date: 20061013
  Serious: Yes (Hospitalization)
  Sender: FDA-Public Use
  Company Number: JP-MERCK-0606USA02216

PATIENT
  Age: 74 Year
  Sex: Male

DRUGS (4)
  1. PEPCID RPD [Suspect]
     Indication: STOMACH DISCOMFORT
     Route: 048
     Dates: start: 20060512, end: 20060524
  2. PANALDINE [Suspect]
     Route: 048
     Dates: start: 20060511, end: 20060522
  3. NITOROL-R [Suspect]
     Route: 048
     Dates: start: 20060510, end: 20060526
  4. BUFFERIN [Concomitant]
     Route: 048
     Dates: start: 20060410

REACTIONS (6)
  - ALANINE AMINOTRANSFERASE INCREASED [None]
  - ASPARTATE AMINOTRANSFERASE INCREASED [None]
  - BLOOD ALKALINE PHOSPHATASE INCREASED [None]
  - BLOOD BILIRUBIN INCREASED [None]
  - BLOOD LACTATE DEHYDROGENASE INCREASED [None]
  - LIVER DISORDER [None]
